FAERS Safety Report 12646357 (Version 1)
Quarter: 2016Q3

REPORT INFORMATION
  Report Type: Spontaneous
  Country: US (occurrence: US)
  Receive Date: 20160812
  Receipt Date: 20160812
  Transmission Date: 20161109
  Serious: No
  Sender: FDA-Public Use
  Company Number: US-009507513-1608USA003361

PATIENT
  Age: 20 Year
  Sex: Female

DRUGS (2)
  1. DULERA [Suspect]
     Active Substance: FORMOTEROL FUMARATE DIHYDRATE\MOMETASONE FUROATE
     Indication: ASTHMA
     Dosage: 100 MICROGRAM/2 PUFFS A DAY
     Route: 055
     Dates: start: 201607, end: 2016
  2. DULERA [Suspect]
     Active Substance: FORMOTEROL FUMARATE DIHYDRATE\MOMETASONE FUROATE
     Dosage: 100 MICROGRAM, DAILY
     Route: 055
     Dates: start: 2016

REACTIONS (2)
  - Hyperhidrosis [Unknown]
  - Polymenorrhoea [Unknown]
